FAERS Safety Report 18557944 (Version 11)
Quarter: 2023Q1

REPORT INFORMATION
  Report Type: Spontaneous
  Country: DE (occurrence: DE)
  Receive Date: 20201130
  Receipt Date: 20230128
  Transmission Date: 20230418
  Serious: Yes (Life-Threatening, Hospitalization, Other)
  Sender: FDA-Public Use
  Company Number: DE-SA-2020SA321270

PATIENT
  Age: 41 Year
  Sex: Male

DRUGS (5)
  1. DULOXETINE [Suspect]
     Active Substance: DULOXETINE
     Indication: Depression
     Dosage: 60 MILLIGRAM, ONCE A DAY
     Route: 065
  2. DULOXETINE [Suspect]
     Active Substance: DULOXETINE
     Indication: Coeliac disease
     Dosage: 30 MILLIGRAM, ONCE A DAY
     Route: 065
  3. MIRTAZAPINE [Suspect]
     Active Substance: MIRTAZAPINE
     Indication: Depression
     Dosage: 30 MILLIGRAM, ONCE A DAY
     Route: 048
  4. NITROGLYCERIN [Concomitant]
     Active Substance: NITROGLYCERIN
     Indication: Product used for unknown indication
     Dosage: UNK
     Route: 065
  5. CYPROHEPTADINE [Concomitant]
     Active Substance: CYPROHEPTADINE
     Indication: Product used for unknown indication
     Dosage: UNK
     Route: 065

REACTIONS (25)
  - Serotonin syndrome [Recovered/Resolved]
  - Dizziness [Recovered/Resolved]
  - Myoclonus [Recovered/Resolved]
  - Blood creatinine increased [Recovering/Resolving]
  - Vomiting [Recovered/Resolved]
  - Hyperhidrosis [Recovered/Resolved]
  - Nervousness [Recovered/Resolved]
  - Psychomotor hyperactivity [Recovered/Resolved]
  - Agitation [Recovering/Resolving]
  - Gait disturbance [Recovering/Resolving]
  - Oxygen saturation decreased [Recovered/Resolved]
  - Atrial fibrillation [Recovered/Resolved]
  - Hypokalaemia [Recovering/Resolving]
  - Polyneuropathy [Recovering/Resolving]
  - Systemic inflammatory response syndrome [Recovered/Resolved]
  - Supraventricular tachycardia [Recovered/Resolved]
  - Ataxia [Recovered/Resolved]
  - Hyperventilation [Recovered/Resolved]
  - Toxicity to various agents [Recovering/Resolving]
  - Condition aggravated [Recovering/Resolving]
  - Balance disorder [Recovered/Resolved]
  - Intensive care unit acquired weakness [Not Recovered/Not Resolved]
  - Drug ineffective [Unknown]
  - Overdose [Unknown]
  - Drug abuse [Unknown]

NARRATIVE: CASE EVENT DATE: 20171001
